FAERS Safety Report 8457806-1 (Version None)
Quarter: 2012Q2

REPORT INFORMATION
  Report Type: 
  Country: None (occurrence: None)
  Receive Date: 20120618
  Receipt Date: 20120618
  Transmission Date: 20120825
  Serious: No
  Sender: FDA-Public Use
  Company Number: None

PATIENT
  Age: 72 Year
  Sex: Male
  Weight: 102.7 kg

DRUGS (1)
  1. SIMVASTATIN [Suspect]
     Indication: HYPERLIPIDAEMIA
     Dosage: 40 MG AT BEDTIME PO
     Route: 048
     Dates: start: 20110304, end: 20120313

REACTIONS (5)
  - BLOOD UREA INCREASED [None]
  - RASH [None]
  - RENAL DISORDER [None]
  - URTICARIA [None]
  - BLOOD CREATINE INCREASED [None]
